FAERS Safety Report 8549544-1 (Version None)
Quarter: 2012Q3

REPORT INFORMATION
  Report Type: 
  Country: None (occurrence: None)
  Receive Date: 20120730
  Receipt Date: 20120724
  Transmission Date: 20120928
  Serious: Yes (Other)
  Sender: FDA-Public Use
  Company Number: US-PFIZER INC-2012144656

PATIENT
  Sex: Female
  Weight: 102 kg

DRUGS (4)
  1. NEURONTIN [Suspect]
     Indication: BACK PAIN
     Dosage: 300 MG, 3X/DAY
     Route: 048
     Dates: start: 20120301
  2. LYRICA [Suspect]
     Indication: PAIN IN EXTREMITY
  3. LYRICA [Suspect]
     Indication: BACK PAIN
     Dosage: UNK
  4. NEURONTIN [Suspect]
     Indication: PAIN IN EXTREMITY

REACTIONS (3)
  - METASTATIC NEOPLASM [None]
  - URINARY HESITATION [None]
  - RENAL DISORDER [None]
